FAERS Safety Report 7071820-2 (Version None)
Quarter: 2010Q4

REPORT INFORMATION
  Report Type: 
  Country: None (occurrence: None)
  Receive Date: 20101029
  Receipt Date: 20091026
  Transmission Date: 20110411
  Serious: No
  Sender: FDA-Public Use
  Company Number: A0813397A

PATIENT
  Age: 55 Year
  Sex: Male

DRUGS (6)
  1. ADVAIR DISKUS 100/50 [Suspect]
     Indication: ASTHMA
     Dosage: 1PUFF TWICE PER DAY
     Route: 055
  2. CRESTOR [Concomitant]
  3. OMACOR [Concomitant]
  4. WELLCOR [Concomitant]
  5. FLUTICASONE PROPIONATE [Concomitant]
  6. ALBUTEROL [Concomitant]

REACTIONS (2)
  - BRONCHITIS [None]
  - NASOPHARYNGITIS [None]
